FAERS Safety Report 12201541 (Version 1)
Quarter: 2016Q1

REPORT INFORMATION
  Report Type: Spontaneous
  Country: US (occurrence: US)
  Receive Date: 20160322
  Receipt Date: 20160322
  Transmission Date: 20160526
  Serious: No
  Sender: FDA-Public Use
  Company Number: US-SA-2015SA172344

PATIENT
  Age: 47 Year
  Sex: Male

DRUGS (1)
  1. NASACORT ALLERGY 24HR [Suspect]
     Active Substance: TRIAMCINOLONE ACETONIDE
     Indication: HYPERSENSITIVITY
     Dosage: DOSE: 1 SPRAY
     Route: 065

REACTIONS (4)
  - Nasal congestion [Unknown]
  - Burning sensation [Unknown]
  - Drug effect incomplete [Unknown]
  - Condition aggravated [Unknown]
